FAERS Safety Report 4742709-6 (Version None)
Quarter: 2005Q3

REPORT INFORMATION
  Report Type: 
  Country: None (occurrence: None)
  Receive Date: 20050811
  Receipt Date: 20050701
  Transmission Date: 20060218
  Serious: Yes (Life-Threatening, Disabling, Other)
  Sender: FDA-Public Use
  Company Number: US-MERCK-0507USA00268

PATIENT
  Age: 41 Year
  Sex: Female
  Weight: 67 kg

DRUGS (9)
  1. SINGULAIR [Suspect]
     Indication: HYPERSENSITIVITY
     Route: 048
     Dates: start: 20030901, end: 20050501
  2. SINGULAIR [Suspect]
     Route: 065
     Dates: end: 20050501
  3. SINGULAIR [Suspect]
     Indication: ASTHMA
     Route: 048
     Dates: start: 20030901, end: 20050501
  4. SINGULAIR [Suspect]
     Route: 065
     Dates: end: 20050501
  5. ALBUTEROL [Concomitant]
     Indication: ASTHMA
     Route: 065
  6. [THERAPY UNSPECIFIED] [Concomitant]
     Indication: CONTRACEPTION
     Route: 065
  7. FLOVENT [Concomitant]
     Indication: ASTHMA
     Route: 048
  8. ALLEGRA [Concomitant]
     Indication: ASTHMA
     Route: 065
  9. NASACORT [Concomitant]
     Indication: HYPERSENSITIVITY
     Route: 065
     Dates: start: 20040826

REACTIONS (11)
  - ANXIETY [None]
  - APNOEA [None]
  - COMPLEX PARTIAL SEIZURES [None]
  - FATIGUE [None]
  - GRAND MAL CONVULSION [None]
  - HEADACHE [None]
  - INSOMNIA [None]
  - LOSS OF CONSCIOUSNESS [None]
  - MEMORY IMPAIRMENT [None]
  - MOOD ALTERED [None]
  - STRESS [None]
